FAERS Safety Report 4994973-6 (Version None)
Quarter: 2006Q2

REPORT INFORMATION
  Report Type: 
  Country: None (occurrence: None)
  Receive Date: 20060503
  Receipt Date: 20060417
  Transmission Date: 20061013
  Serious: Yes (Hospitalization)
  Sender: FDA-Public Use
  Company Number: L06-TUR-01591-01

PATIENT
  Age: 38 Year
  Sex: Male

DRUGS (4)
  1. ESCITALOPRAM OXALATE [Suspect]
     Indication: MAJOR DEPRESSION
     Dosage: 10 MG QD PO
     Route: 048
  2. SERTRALINE [Suspect]
     Indication: MAJOR DEPRESSION
     Dosage: 50 MG QD
  3. TIANEPTINE [Suspect]
     Indication: MAJOR DEPRESSION
     Dosage: 12.5 MG TID PO
     Route: 048
  4. TIANEPTINE [Suspect]
     Indication: MAJOR DEPRESSION
     Dosage: 12.5 MG

REACTIONS (2)
  - AKATHISIA [None]
  - PARKINSONISM [None]
